FAERS Safety Report 6172372-1 (Version None)
Quarter: 2009Q2

REPORT INFORMATION
  Report Type: 
  Country: None (occurrence: None)
  Receive Date: 20090429
  Receipt Date: 20090420
  Transmission Date: 20091009
  Serious: Yes (Other)
  Sender: FDA-Public Use
  Company Number: PHHY2009ZA15426

PATIENT
  Age: 47 Year
  Sex: Male

DRUGS (2)
  1. TASIGNA [Suspect]
     Dosage: UNK
     Route: 065
     Dates: start: 20090101
  2. DASATINIB [Suspect]

REACTIONS (1)
  - SCLERODERMA [None]
